FAERS Safety Report 21066041 (Version 1)
Quarter: 2022Q3

REPORT INFORMATION
  Report Type: Spontaneous
  Country: AR (occurrence: AR)
  Receive Date: 20220711
  Receipt Date: 20220711
  Transmission Date: 20221027
  Serious: Yes (Other)
  Sender: FDA-Public Use
  Company Number: AR-PFIZER INC-PV202200018214

PATIENT
  Age: 73 Year
  Sex: Male

DRUGS (1)
  1. XELJANZ [Suspect]
     Active Substance: TOFACITINIB CITRATE
     Indication: Rheumatoid arthritis
     Dosage: 5 MG, 2X/DAY
     Dates: start: 20191211

REACTIONS (3)
  - Visual impairment [Unknown]
  - Intentional product misuse [Unknown]
  - Product dispensing error [Unknown]

NARRATIVE: CASE EVENT DATE: 20220101
